FAERS Safety Report 16384232 (Version 1)
Quarter: 2019Q2

REPORT INFORMATION
  Report Type: Spontaneous
  Country: US (occurrence: US)
  Receive Date: 20190426
  Receipt Date: 20190426
  Transmission Date: 20190711
  Serious: Yes (Other)
  Sender: FDA-Public Use
  Company Number: None

PATIENT
  Age: 74 Year
  Sex: Female
  Weight: 73.48 kg

DRUGS (16)
  1. PIOGLITAZONE. [Suspect]
     Active Substance: PIOGLITAZONE
     Indication: DIABETES MELLITUS
     Dosage: ?          QUANTITY:10 MG MILLIGRAM(S);?
     Route: 048
     Dates: start: 20190320
  2. PIOGLITAZONE. [Suspect]
     Active Substance: PIOGLITAZONE
     Indication: DIABETES MELLITUS
     Dosage: ?          QUANTITY:50 MG MILLIGRAM(S);?
     Dates: start: 20190320, end: 20190401
  3. ALLERGY [Concomitant]
     Active Substance: UNSPECIFIED INGREDIENT
  4. MELOXICAM. [Concomitant]
     Active Substance: MELOXICAM
  5. TRESIBA [Concomitant]
     Active Substance: INSULIN DEGLUDEC
  6. SENTRY MULTIVITAMIN MULTIMINERAL SUPPLEMENT [Concomitant]
  7. ARTHRITIS PAIN RELIEF [Concomitant]
     Active Substance: ACETAMINOPHEN
  8. NOVOLOG FLEN PEN [Concomitant]
  9. LOSARTAN AND HYDROCHLOROTHIAZIDE [Concomitant]
     Active Substance: HYDROCHLOROTHIAZIDE\LOSARTAN POTASSIUM
  10. TRIAMCINOLONE ACETONID CREAM [Concomitant]
  11. MELATONIN [Concomitant]
     Active Substance: MELATONIN
  12. LOW ASPIRIN [Concomitant]
  13. TOUCH PEN TRUSLICT [Concomitant]
  14. OMEPRAZOLE DR [Concomitant]
     Active Substance: OMEPRAZOLE
  15. PIOGLITAZONE. [Suspect]
     Active Substance: PIOGLITAZONE
     Indication: DIABETES MELLITUS
     Dosage: 50-12 MG TAB?10 MG TAB?15MG TAB
     Route: 048
     Dates: start: 20190320, end: 20190401
  16. EZETIMB [Concomitant]

REACTIONS (7)
  - Abdominal discomfort [None]
  - Pain in extremity [None]
  - Cough [None]
  - Burning sensation [None]
  - Pain [None]
  - Peripheral swelling [None]
  - Nausea [None]

NARRATIVE: CASE EVENT DATE: 20190420
